FAERS Safety Report 4668381-1 (Version None)
Quarter: 2005Q2

REPORT INFORMATION
  Report Type: 
  Country: None (occurrence: None)
  Receive Date: 20050523
  Receipt Date: 20041229
  Transmission Date: 20051028
  Serious: Yes (Hospitalization, Other)
  Sender: FDA-Public Use
  Company Number: PHNU2004DE04319

PATIENT
  Age: 62 Year
  Sex: Male

DRUGS (3)
  1. TRENANTONE [Concomitant]
     Indication: PROSTATE CANCER METASTATIC
     Dosage: 1 DF, Q3MO
     Route: 058
     Dates: start: 20031115
  2. CASODEX [Concomitant]
     Indication: PROSTATE CANCER METASTATIC
     Dosage: 50 MG, QD
     Route: 048
     Dates: start: 20031110
  3. ZOMETA [Suspect]
     Indication: METASTASES TO BONE
     Dosage: 4 MG, QMO
     Route: 042
     Dates: start: 20031201

REACTIONS (13)
  - ANAESTHESIA [None]
  - BONE DISORDER [None]
  - BONE TRIMMING [None]
  - DENTAL OPERATION [None]
  - GINGIVITIS [None]
  - INFLAMMATION [None]
  - JAW DISORDER [None]
  - LEUKOPLAKIA [None]
  - OSTEOLYSIS [None]
  - OSTEONECROSIS [None]
  - PRIMARY SEQUESTRUM [None]
  - SEQUESTRECTOMY [None]
  - VOCAL CORD DISORDER [None]
